FAERS Safety Report 21200509 (Version 44)
Quarter: 2025Q3

REPORT INFORMATION
  Report Type: Spontaneous
  Country: CA (occurrence: CA)
  Receive Date: 20220811
  Receipt Date: 20250908
  Transmission Date: 20251021
  Serious: Yes (Hospitalization, Other)
  Sender: BAUSCH AND LOMB
  Company Number: CA-BAUSCH-BL-2020-022260

PATIENT
  Age: 41 Year
  Sex: Female

DRUGS (723)
  1. DEXAMETHASONE [Suspect]
     Active Substance: DEXAMETHASONE
     Indication: Migraine
     Dosage: 2 ADMINISTRATIONS
     Route: 065
  2. DEXAMETHASONE [Suspect]
     Active Substance: DEXAMETHASONE
     Route: 065
  3. DEXAMETHASONE [Suspect]
     Active Substance: DEXAMETHASONE
     Route: 065
  4. DEXAMETHASONE [Suspect]
     Active Substance: DEXAMETHASONE
     Route: 065
  5. DEXAMETHASONE [Suspect]
     Active Substance: DEXAMETHASONE
     Route: 065
  6. DEXAMETHASONE [Suspect]
     Active Substance: DEXAMETHASONE
     Route: 065
  7. DEXAMETHASONE [Suspect]
     Active Substance: DEXAMETHASONE
     Route: 065
  8. DEXAMETHASONE [Suspect]
     Active Substance: DEXAMETHASONE
     Route: 065
  9. VENLAFAXINE HYDROCHLORIDE [Suspect]
     Active Substance: VENLAFAXINE HYDROCHLORIDE
     Indication: Migraine
     Route: 065
  10. VENLAFAXINE HYDROCHLORIDE [Suspect]
     Active Substance: VENLAFAXINE HYDROCHLORIDE
     Indication: Product used for unknown indication
     Route: 065
  11. VENLAFAXINE HYDROCHLORIDE [Suspect]
     Active Substance: VENLAFAXINE HYDROCHLORIDE
     Route: 065
  12. VENLAFAXINE HYDROCHLORIDE [Suspect]
     Active Substance: VENLAFAXINE HYDROCHLORIDE
     Route: 065
  13. VENLAFAXINE HYDROCHLORIDE [Suspect]
     Active Substance: VENLAFAXINE HYDROCHLORIDE
     Route: 065
  14. VENLAFAXINE HYDROCHLORIDE [Suspect]
     Active Substance: VENLAFAXINE HYDROCHLORIDE
     Route: 065
  15. VENLAFAXINE HYDROCHLORIDE [Suspect]
     Active Substance: VENLAFAXINE HYDROCHLORIDE
     Route: 065
  16. VENLAFAXINE HYDROCHLORIDE [Suspect]
     Active Substance: VENLAFAXINE HYDROCHLORIDE
     Route: 065
  17. VENLAFAXINE HYDROCHLORIDE [Suspect]
     Active Substance: VENLAFAXINE HYDROCHLORIDE
     Route: 065
  18. VENLAFAXINE HYDROCHLORIDE [Suspect]
     Active Substance: VENLAFAXINE HYDROCHLORIDE
     Route: 065
  19. VENLAFAXINE HYDROCHLORIDE [Suspect]
     Active Substance: VENLAFAXINE HYDROCHLORIDE
     Route: 065
  20. METRONIDAZOLE [Suspect]
     Active Substance: METRONIDAZOLE
     Indication: Migraine
     Route: 065
  21. ALBUTEROL [Suspect]
     Active Substance: ALBUTEROL
     Indication: Product used for unknown indication
     Dosage: SALBUTAMOL
     Route: 065
  22. ALBUTEROL [Suspect]
     Active Substance: ALBUTEROL
     Dosage: SALBUTAMOL SULFATE
     Route: 065
  23. ALBUTEROL [Suspect]
     Active Substance: ALBUTEROL
     Dosage: SALBUTAMOL
     Route: 065
  24. ALBUTEROL [Suspect]
     Active Substance: ALBUTEROL
     Dosage: SALBUTAMOL HFA, METERED-DOSE (AEROSOL)
     Route: 065
  25. ALBUTEROL [Suspect]
     Active Substance: ALBUTEROL
     Dosage: SALBUTAMOL SULFATE
     Route: 065
  26. ALBUTEROL [Suspect]
     Active Substance: ALBUTEROL
     Dosage: SALBUTAMOL HFA, METERED-DOSE (AEROSOL)
     Route: 065
  27. ALBUTEROL [Suspect]
     Active Substance: ALBUTEROL
     Dosage: SALBUTAMOL
     Route: 065
  28. ALBUTEROL [Suspect]
     Active Substance: ALBUTEROL
     Route: 065
  29. ALBUTEROL [Suspect]
     Active Substance: ALBUTEROL
     Dosage: SALBUTAMOL SULFATE
     Route: 065
  30. ALBUTEROL [Suspect]
     Active Substance: ALBUTEROL
     Dosage: SALBUTAMOL
     Route: 065
  31. ALBUTEROL [Suspect]
     Active Substance: ALBUTEROL
     Dosage: SALBUTAMOL
     Route: 065
  32. ALBUTEROL [Suspect]
     Active Substance: ALBUTEROL
     Route: 065
  33. ALBUTEROL [Suspect]
     Active Substance: ALBUTEROL
     Route: 065
  34. ALBUTEROL [Suspect]
     Active Substance: ALBUTEROL
     Dosage: SALBUTAMOL
     Route: 065
  35. ALBUTEROL [Suspect]
     Active Substance: ALBUTEROL
     Route: 065
  36. ALBUTEROL [Suspect]
     Active Substance: ALBUTEROL
     Route: 065
  37. TRAMADOL HYDROCHLORIDE [Suspect]
     Active Substance: TRAMADOL HYDROCHLORIDE
     Indication: Product used for unknown indication
     Route: 065
  38. TRAMADOL HYDROCHLORIDE [Suspect]
     Active Substance: TRAMADOL HYDROCHLORIDE
     Route: 065
  39. TRAMADOL HYDROCHLORIDE [Suspect]
     Active Substance: TRAMADOL HYDROCHLORIDE
     Route: 065
  40. TRAMADOL HYDROCHLORIDE [Suspect]
     Active Substance: TRAMADOL HYDROCHLORIDE
     Route: 065
  41. DEXAMETHASONE SODIUM PHOSPHATE [Suspect]
     Active Substance: DEXAMETHASONE SODIUM PHOSPHATE
     Indication: Migraine
     Route: 065
  42. DEXAMETHASONE SODIUM PHOSPHATE [Suspect]
     Active Substance: DEXAMETHASONE SODIUM PHOSPHATE
     Route: 065
  43. DEXAMETHASONE SODIUM PHOSPHATE [Suspect]
     Active Substance: DEXAMETHASONE SODIUM PHOSPHATE
     Route: 048
  44. DEXAMETHASONE SODIUM PHOSPHATE [Suspect]
     Active Substance: DEXAMETHASONE SODIUM PHOSPHATE
     Dosage: 2 ADMINISTRATION
     Route: 048
  45. DEXAMETHASONE SODIUM PHOSPHATE [Suspect]
     Active Substance: DEXAMETHASONE SODIUM PHOSPHATE
     Dosage: 2 ADMINISTRATION
     Route: 048
  46. ACETAMINOPHEN [Suspect]
     Active Substance: ACETAMINOPHEN
     Indication: Migraine
     Route: 065
  47. ACETAMINOPHEN [Suspect]
     Active Substance: ACETAMINOPHEN
     Indication: Arthritis
     Route: 065
  48. ACETAMINOPHEN [Suspect]
     Active Substance: ACETAMINOPHEN
     Route: 065
  49. ACETAMINOPHEN [Suspect]
     Active Substance: ACETAMINOPHEN
     Route: 065
  50. ACETAMINOPHEN [Suspect]
     Active Substance: ACETAMINOPHEN
     Route: 065
  51. AZITHROMYCIN [Suspect]
     Active Substance: AZITHROMYCIN
     Indication: Migraine
     Route: 065
  52. AZITHROMYCIN [Suspect]
     Active Substance: AZITHROMYCIN
     Indication: Product used for unknown indication
     Route: 065
  53. AZITHROMYCIN [Suspect]
     Active Substance: AZITHROMYCIN
     Route: 065
  54. AZITHROMYCIN [Suspect]
     Active Substance: AZITHROMYCIN
     Route: 065
  55. AZITHROMYCIN [Suspect]
     Active Substance: AZITHROMYCIN
     Route: 065
  56. AZITHROMYCIN [Suspect]
     Active Substance: AZITHROMYCIN
     Route: 065
  57. AZITHROMYCIN [Suspect]
     Active Substance: AZITHROMYCIN
     Route: 065
  58. AZITHROMYCIN [Suspect]
     Active Substance: AZITHROMYCIN
     Route: 065
  59. AZITHROMYCIN [Suspect]
     Active Substance: AZITHROMYCIN
     Route: 065
  60. AZITHROMYCIN [Suspect]
     Active Substance: AZITHROMYCIN
     Route: 065
  61. AZITHROMYCIN [Suspect]
     Active Substance: AZITHROMYCIN
     Route: 065
  62. AZITHROMYCIN [Suspect]
     Active Substance: AZITHROMYCIN
     Route: 065
  63. AZITHROMYCIN [Suspect]
     Active Substance: AZITHROMYCIN
     Route: 065
  64. AZITHROMYCIN [Suspect]
     Active Substance: AZITHROMYCIN
     Route: 065
  65. AZITHROMYCIN [Suspect]
     Active Substance: AZITHROMYCIN
     Route: 065
  66. AZITHROMYCIN [Suspect]
     Active Substance: AZITHROMYCIN
     Route: 065
  67. AZITHROMYCIN [Suspect]
     Active Substance: AZITHROMYCIN
     Route: 065
  68. AZITHROMYCIN [Suspect]
     Active Substance: AZITHROMYCIN
     Route: 065
  69. AZITHROMYCIN [Suspect]
     Active Substance: AZITHROMYCIN
     Dosage: AZITHROMYCIN?DIHYDRATE
     Route: 065
  70. AZITHROMYCIN [Suspect]
     Active Substance: AZITHROMYCIN
     Dosage: AZITHROMYCIN DIHYDRATE
     Route: 065
  71. AZITHROMYCIN [Suspect]
     Active Substance: AZITHROMYCIN
     Route: 065
  72. CIPROFLOXACIN [Suspect]
     Active Substance: CIPROFLOXACIN
     Indication: Migraine
     Dosage: CIPROFLOXACIN
     Route: 065
  73. CIPROFLOXACIN [Suspect]
     Active Substance: CIPROFLOXACIN
     Indication: Product used for unknown indication
     Route: 065
  74. CIPROFLOXACIN [Suspect]
     Active Substance: CIPROFLOXACIN
     Dosage: CIPROFLOXACIN
     Route: 065
  75. CIPROFLOXACIN [Suspect]
     Active Substance: CIPROFLOXACIN
     Dosage: 2 EVERY 1 DAY
     Route: 065
  76. CIPROFLOXACIN [Suspect]
     Active Substance: CIPROFLOXACIN
     Dosage: CIPROFLOXACIN
     Route: 065
  77. CIPROFLOXACIN [Suspect]
     Active Substance: CIPROFLOXACIN
     Dosage: CIPROFLOXACIN HYDROCHLORIDE
     Route: 065
  78. CIPROFLOXACIN [Suspect]
     Active Substance: CIPROFLOXACIN
     Route: 065
  79. CIPROFLOXACIN [Suspect]
     Active Substance: CIPROFLOXACIN
     Route: 065
  80. CIPROFLOXACIN [Suspect]
     Active Substance: CIPROFLOXACIN
     Dosage: CIPROFLOXACIN HYDROCHLORIDE
     Route: 048
  81. CIPROFLOXACIN [Suspect]
     Active Substance: CIPROFLOXACIN
     Dosage: CIPROFLOXACIN HYDROCHLORIDE
     Route: 065
  82. CIPROFLOXACIN [Suspect]
     Active Substance: CIPROFLOXACIN
     Route: 065
  83. CIPROFLOXACIN [Suspect]
     Active Substance: CIPROFLOXACIN
     Dosage: CIPROFLOXACIN LACTATE
     Route: 065
  84. CIPROFLOXACIN [Suspect]
     Active Substance: CIPROFLOXACIN
     Dosage: CIPROFLOXACIN LACTATE
     Route: 065
  85. CIPROFLOXACIN [Suspect]
     Active Substance: CIPROFLOXACIN
     Dosage: CIPROFLOXACIN
     Route: 048
  86. CIPROFLOXACIN [Suspect]
     Active Substance: CIPROFLOXACIN
     Dosage: CIPROFLOXACIN
     Route: 065
  87. CIPROFLOXACIN [Suspect]
     Active Substance: CIPROFLOXACIN
     Dosage: CIPROFLOXACIN
     Route: 065
  88. CIPROFLOXACIN [Suspect]
     Active Substance: CIPROFLOXACIN
     Dosage: CIPROFLOXACIN HYDROCHLORIDE
     Route: 065
  89. CIPROFLOXACIN [Suspect]
     Active Substance: CIPROFLOXACIN
     Dosage: CIPROFLOXACIN HYDROCHLORIDE
     Route: 065
  90. CIPROFLOXACIN [Suspect]
     Active Substance: CIPROFLOXACIN
     Route: 065
  91. CIPROFLOXACIN [Suspect]
     Active Substance: CIPROFLOXACIN
     Route: 065
  92. CIPROFLOXACIN [Suspect]
     Active Substance: CIPROFLOXACIN
     Dosage: CIPROFLOXACIN
     Route: 048
  93. CIPROFLOXACIN [Suspect]
     Active Substance: CIPROFLOXACIN
     Route: 048
  94. CIPROFLOXACIN [Suspect]
     Active Substance: CIPROFLOXACIN
     Route: 048
  95. CIPROFLOXACIN [Suspect]
     Active Substance: CIPROFLOXACIN
     Dosage: CIPROFLOXACIN
     Route: 048
  96. CIPROFLOXACIN [Suspect]
     Active Substance: CIPROFLOXACIN
     Route: 065
  97. CIPROFLOXACIN [Suspect]
     Active Substance: CIPROFLOXACIN
     Route: 065
  98. CIPROFLOXACIN [Suspect]
     Active Substance: CIPROFLOXACIN
     Route: 065
  99. CIPROFLOXACIN [Suspect]
     Active Substance: CIPROFLOXACIN
     Dosage: CIPROFLOXACIN (4 ADMINISTRATIONS)
     Route: 048
  100. CIPROFLOXACIN [Suspect]
     Active Substance: CIPROFLOXACIN
     Dosage: CIPROFLOXACIN
     Route: 065
  101. CIPROFLOXACIN [Suspect]
     Active Substance: CIPROFLOXACIN
     Dosage: CIPROFLOXACIN
     Route: 065
  102. CIPROFLOXACIN [Suspect]
     Active Substance: CIPROFLOXACIN
     Dosage: CIPROFLOXACIN
     Route: 065
  103. CIPROFLOXACIN [Suspect]
     Active Substance: CIPROFLOXACIN
     Dosage: CIPROFLOXACIN
     Route: 065
  104. CIPROFLOXACIN [Suspect]
     Active Substance: CIPROFLOXACIN
     Route: 065
  105. CIPROFLOXACIN [Suspect]
     Active Substance: CIPROFLOXACIN
     Route: 065
  106. CIPROFLOXACIN [Suspect]
     Active Substance: CIPROFLOXACIN
     Dosage: CIPROFLOXACIN LACTATE
     Route: 065
  107. CIPROFLOXACIN [Suspect]
     Active Substance: CIPROFLOXACIN
     Dosage: CIPROFLOXACIN LACTATE
     Route: 065
  108. CIPROFLOXACIN [Suspect]
     Active Substance: CIPROFLOXACIN
     Route: 048
  109. CIPROFLOXACIN [Suspect]
     Active Substance: CIPROFLOXACIN
     Route: 065
  110. CIPROFLOXACIN [Suspect]
     Active Substance: CIPROFLOXACIN
     Route: 065
  111. CIPROFLOXACIN [Suspect]
     Active Substance: CIPROFLOXACIN
     Route: 065
  112. CIPROFLOXACIN [Suspect]
     Active Substance: CIPROFLOXACIN
     Route: 065
  113. CIPROFLOXACIN [Suspect]
     Active Substance: CIPROFLOXACIN
     Route: 065
  114. CIPROFLOXACIN [Suspect]
     Active Substance: CIPROFLOXACIN
     Route: 065
  115. CIPROFLOXACIN [Suspect]
     Active Substance: CIPROFLOXACIN
     Dosage: CIPROFLOXACIN LACTATE
  116. CLARITHROMYCIN [Suspect]
     Active Substance: CLARITHROMYCIN
     Indication: Product used for unknown indication
     Dosage: NOT SPECIFIED (2 ADMINISTRATIONS)
     Route: 065
  117. CLARITHROMYCIN [Suspect]
     Active Substance: CLARITHROMYCIN
     Route: 065
  118. CLARITHROMYCIN [Suspect]
     Active Substance: CLARITHROMYCIN
     Dosage: NOT SPECIFIED
     Route: 065
  119. CLARITHROMYCIN [Suspect]
     Active Substance: CLARITHROMYCIN
     Route: 065
  120. CLARITHROMYCIN [Suspect]
     Active Substance: CLARITHROMYCIN
     Dosage: NOT SPECIFIED
     Route: 065
  121. CLARITHROMYCIN [Suspect]
     Active Substance: CLARITHROMYCIN
     Dosage: NOT SPECIFIED
     Route: 065
  122. CLARITHROMYCIN [Suspect]
     Active Substance: CLARITHROMYCIN
     Route: 065
  123. CLARITHROMYCIN [Suspect]
     Active Substance: CLARITHROMYCIN
     Route: 065
  124. CLARITHROMYCIN [Suspect]
     Active Substance: CLARITHROMYCIN
     Route: 065
  125. CLARITHROMYCIN [Suspect]
     Active Substance: CLARITHROMYCIN
     Route: 065
  126. CODEINE [Suspect]
     Active Substance: CODEINE
     Indication: Migraine
     Route: 065
  127. CODEINE [Suspect]
     Active Substance: CODEINE
     Route: 065
  128. CODEINE [Suspect]
     Active Substance: CODEINE
     Route: 065
  129. CODEINE [Suspect]
     Active Substance: CODEINE
     Route: 065
  130. CODEINE [Suspect]
     Active Substance: CODEINE
     Route: 048
  131. CODEINE [Suspect]
     Active Substance: CODEINE
     Route: 048
  132. CODEINE [Suspect]
     Active Substance: CODEINE
     Route: 065
  133. DULOXETINE [Suspect]
     Active Substance: DULOXETINE
     Indication: Migraine
     Route: 065
  134. DULOXETINE [Suspect]
     Active Substance: DULOXETINE
     Route: 065
  135. DULOXETINE [Suspect]
     Active Substance: DULOXETINE
     Route: 065
  136. DULOXETINE [Suspect]
     Active Substance: DULOXETINE
     Route: 065
  137. DULOXETINE [Suspect]
     Active Substance: DULOXETINE
     Route: 065
  138. DULOXETINE [Suspect]
     Active Substance: DULOXETINE
     Route: 065
  139. FLUCONAZOLE [Suspect]
     Active Substance: FLUCONAZOLE
     Indication: Migraine
     Route: 065
  140. FLUCONAZOLE [Suspect]
     Active Substance: FLUCONAZOLE
     Indication: Product used for unknown indication
     Route: 065
  141. FLUCONAZOLE [Suspect]
     Active Substance: FLUCONAZOLE
     Route: 065
  142. FLUCONAZOLE [Suspect]
     Active Substance: FLUCONAZOLE
     Route: 065
  143. FLUCONAZOLE [Suspect]
     Active Substance: FLUCONAZOLE
     Route: 065
  144. HYDROMORPHONE [Suspect]
     Active Substance: HYDROMORPHONE
     Indication: Migraine
     Dosage: 11 ADMINISTRATIONS
     Route: 065
  145. HYDROMORPHONE [Suspect]
     Active Substance: HYDROMORPHONE
     Indication: Product used for unknown indication
     Route: 065
  146. HYDROMORPHONE [Suspect]
     Active Substance: HYDROMORPHONE
     Route: 065
  147. HYDROMORPHONE [Suspect]
     Active Substance: HYDROMORPHONE
     Route: 065
  148. HYDROMORPHONE [Suspect]
     Active Substance: HYDROMORPHONE
     Route: 065
  149. HYDROMORPHONE [Suspect]
     Active Substance: HYDROMORPHONE
     Route: 065
  150. HYDROMORPHONE [Suspect]
     Active Substance: HYDROMORPHONE
     Route: 065
  151. HYDROMORPHONE [Suspect]
     Active Substance: HYDROMORPHONE
     Dosage: 1 ADMINISTRATION GIVEN
     Route: 065
  152. HYDROMORPHONE [Suspect]
     Active Substance: HYDROMORPHONE
     Route: 065
  153. HYDROMORPHONE [Suspect]
     Active Substance: HYDROMORPHONE
     Route: 065
  154. HYDROMORPHONE [Suspect]
     Active Substance: HYDROMORPHONE
     Route: 065
  155. HYDROMORPHONE [Suspect]
     Active Substance: HYDROMORPHONE
     Route: 065
  156. HYDROMORPHONE [Suspect]
     Active Substance: HYDROMORPHONE
     Route: 065
  157. HYDROMORPHONE [Suspect]
     Active Substance: HYDROMORPHONE
     Route: 065
  158. HYDROMORPHONE [Suspect]
     Active Substance: HYDROMORPHONE
     Route: 065
  159. HYDROMORPHONE [Suspect]
     Active Substance: HYDROMORPHONE
     Route: 005
  160. HYDROMORPHONE [Suspect]
     Active Substance: HYDROMORPHONE
     Dosage: HYDROMORPHONE HYDROCHLORIDE
     Route: 065
  161. HYDROMORPHONE [Suspect]
     Active Substance: HYDROMORPHONE
     Route: 065
  162. HYDROMORPHONE [Suspect]
     Active Substance: HYDROMORPHONE
     Route: 065
  163. HYDROMORPHONE [Suspect]
     Active Substance: HYDROMORPHONE
     Route: 065
  164. HYDROMORPHONE [Suspect]
     Active Substance: HYDROMORPHONE
     Route: 065
  165. HYDROMORPHONE [Suspect]
     Active Substance: HYDROMORPHONE
     Route: 065
  166. HYDROMORPHONE [Suspect]
     Active Substance: HYDROMORPHONE
     Route: 065
  167. HYDROMORPHONE [Suspect]
     Active Substance: HYDROMORPHONE
     Dosage: HYDROMORPHONE HYDROCHLORIDE
     Route: 065
  168. HYDROMORPHONE [Suspect]
     Active Substance: HYDROMORPHONE
     Dosage: HYDROMORPHONE
     Route: 065
  169. HYDROMORPHONE [Suspect]
     Active Substance: HYDROMORPHONE
     Dosage: HYDROMORPHONE
     Route: 065
  170. HYDROMORPHONE [Suspect]
     Active Substance: HYDROMORPHONE
     Route: 065
  171. HYDROMORPHONE [Suspect]
     Active Substance: HYDROMORPHONE
     Dosage: HYDROMORPHONE HYDROCHLORIDE
     Route: 065
  172. HYDROMORPHONE [Suspect]
     Active Substance: HYDROMORPHONE
     Dosage: HYDROMORPHONE HYDROCHLORIDE
     Route: 005
  173. HYDROMORPHONE [Suspect]
     Active Substance: HYDROMORPHONE
     Dosage: HYDROMORPHONE, 12 ADMINISTRATIONS GIVEN
     Route: 065
  174. HYDROMORPHONE [Suspect]
     Active Substance: HYDROMORPHONE
     Dosage: HYDROMORPHONE
     Route: 065
  175. HYDROMORPHONE [Suspect]
     Active Substance: HYDROMORPHONE
     Dosage: HYDROMORPHONE
     Route: 065
  176. HYDROMORPHONE [Suspect]
     Active Substance: HYDROMORPHONE
     Dosage: HYDROMORPHONE, 2 ADMINISTRATIONS GIVEN
     Route: 065
  177. HYDROMORPHONE [Suspect]
     Active Substance: HYDROMORPHONE
     Dosage: HYDROMORPHONE
     Route: 065
  178. HYDROMORPHONE [Suspect]
     Active Substance: HYDROMORPHONE
     Dosage: HYDROMORPHONE
     Route: 065
  179. HYDROMORPHONE [Suspect]
     Active Substance: HYDROMORPHONE
     Dosage: HYDROMORPHONE
     Route: 065
  180. HYDROMORPHONE [Suspect]
     Active Substance: HYDROMORPHONE
     Dosage: HYDROMORPHONE, 3 ADMINISTRATIONS GIVEN
     Route: 065
  181. HYDROMORPHONE [Suspect]
     Active Substance: HYDROMORPHONE
     Dosage: HYDROMORPHONE, 2 ADMINISTRATIONS GIVEN
     Route: 065
  182. HYDROMORPHONE [Suspect]
     Active Substance: HYDROMORPHONE
     Dosage: HYDROMORPHONE, 3 ADMINISTRATIONS GIVEN
     Route: 065
  183. HYDROMORPHONE [Suspect]
     Active Substance: HYDROMORPHONE
     Route: 065
  184. HYDROMORPHONE [Suspect]
     Active Substance: HYDROMORPHONE
     Route: 065
  185. HYDROMORPHONE [Suspect]
     Active Substance: HYDROMORPHONE
     Route: 065
  186. HYDROMORPHONE [Suspect]
     Active Substance: HYDROMORPHONE
     Route: 065
  187. HYDROMORPHONE [Suspect]
     Active Substance: HYDROMORPHONE
     Route: 065
  188. HYDROMORPHONE [Suspect]
     Active Substance: HYDROMORPHONE
     Route: 065
  189. HYDROMORPHONE [Suspect]
     Active Substance: HYDROMORPHONE
     Route: 065
  190. HYDROMORPHONE [Suspect]
     Active Substance: HYDROMORPHONE
     Route: 065
  191. HYDROMORPHONE [Suspect]
     Active Substance: HYDROMORPHONE
     Route: 065
  192. HYDROMORPHONE [Suspect]
     Active Substance: HYDROMORPHONE
     Route: 065
  193. HYDROMORPHONE [Suspect]
     Active Substance: HYDROMORPHONE
     Route: 065
  194. LISINOPRIL [Suspect]
     Active Substance: LISINOPRIL
     Indication: Migraine
     Route: 065
  195. LISINOPRIL [Suspect]
     Active Substance: LISINOPRIL
     Indication: Product used for unknown indication
     Route: 065
  196. LISINOPRIL [Suspect]
     Active Substance: LISINOPRIL
     Route: 065
  197. LISINOPRIL [Suspect]
     Active Substance: LISINOPRIL
     Route: 065
  198. LISINOPRIL [Suspect]
     Active Substance: LISINOPRIL
     Route: 065
  199. LISINOPRIL [Suspect]
     Active Substance: LISINOPRIL
     Route: 065
  200. LISINOPRIL [Suspect]
     Active Substance: LISINOPRIL
     Route: 065
  201. LISINOPRIL [Suspect]
     Active Substance: LISINOPRIL
     Route: 048
  202. LISINOPRIL [Suspect]
     Active Substance: LISINOPRIL
     Route: 065
  203. LISINOPRIL [Suspect]
     Active Substance: LISINOPRIL
     Route: 048
  204. LISINOPRIL [Suspect]
     Active Substance: LISINOPRIL
     Route: 065
  205. LISINOPRIL [Suspect]
     Active Substance: LISINOPRIL
     Route: 048
  206. LISINOPRIL [Suspect]
     Active Substance: LISINOPRIL
     Route: 048
  207. MOMETASONE [Suspect]
     Active Substance: MOMETASONE
     Indication: Migraine
     Dosage: MOMETASONE; SPRAY, METERED DOSE
     Route: 065
  208. MOMETASONE [Suspect]
     Active Substance: MOMETASONE
     Dosage: MOMETASONE
     Route: 065
  209. MOMETASONE [Suspect]
     Active Substance: MOMETASONE
     Dosage: MOMETASONE
     Route: 065
  210. MOMETASONE [Suspect]
     Active Substance: MOMETASONE
     Route: 065
  211. MOMETASONE [Suspect]
     Active Substance: MOMETASONE
     Route: 065
  212. MOMETASONE [Suspect]
     Active Substance: MOMETASONE
     Route: 065
  213. MOMETASONE [Suspect]
     Active Substance: MOMETASONE
     Dosage: MOMETASONE FUROATE
     Route: 055
  214. MOMETASONE [Suspect]
     Active Substance: MOMETASONE
     Dosage: MOMETASONE FUROATE
     Route: 055
  215. MOMETASONE [Suspect]
     Active Substance: MOMETASONE
     Dosage: MOMETASONE FUROATE
     Route: 065
  216. MOMETASONE [Suspect]
     Active Substance: MOMETASONE
     Route: 065
  217. MOMETASONE [Suspect]
     Active Substance: MOMETASONE
     Dosage: MOMETASONE FUROATE
     Route: 065
  218. MOMETASONE [Suspect]
     Active Substance: MOMETASONE
     Dosage: MOMETASONE FUROATE
     Route: 065
  219. MOMETASONE [Suspect]
     Active Substance: MOMETASONE
     Dosage: MOMETASONE FUROATE
     Route: 065
  220. MOMETASONE [Suspect]
     Active Substance: MOMETASONE
     Route: 065
  221. MOMETASONE [Suspect]
     Active Substance: MOMETASONE
     Route: 065
  222. MOMETASONE [Suspect]
     Active Substance: MOMETASONE
     Dosage: MOMETASONE, 2 ADMINISTRATIONS GIVEN
     Route: 065
  223. MOMETASONE [Suspect]
     Active Substance: MOMETASONE
     Route: 065
  224. MOMETASONE [Suspect]
     Active Substance: MOMETASONE
     Dosage: MOMETASONE
     Route: 065
  225. MOMETASONE [Suspect]
     Active Substance: MOMETASONE
     Dosage: MOMETASONE
     Route: 065
  226. MOMETASONE [Suspect]
     Active Substance: MOMETASONE
     Route: 065
  227. MOMETASONE [Suspect]
     Active Substance: MOMETASONE
     Route: 065
  228. RABEPRAZOLE [Suspect]
     Active Substance: RABEPRAZOLE
     Indication: Migraine
     Dosage: RABEPRAZOLE SODIUM
     Route: 065
  229. RABEPRAZOLE [Suspect]
     Active Substance: RABEPRAZOLE
     Route: 065
  230. RABEPRAZOLE [Suspect]
     Active Substance: RABEPRAZOLE
     Route: 065
  231. RABEPRAZOLE [Suspect]
     Active Substance: RABEPRAZOLE
     Route: 065
  232. RABEPRAZOLE [Suspect]
     Active Substance: RABEPRAZOLE
     Route: 065
  233. RABEPRAZOLE [Suspect]
     Active Substance: RABEPRAZOLE
     Route: 065
  234. RABEPRAZOLE [Suspect]
     Active Substance: RABEPRAZOLE
     Route: 065
  235. RABEPRAZOLE [Suspect]
     Active Substance: RABEPRAZOLE
     Route: 065
  236. RABEPRAZOLE [Suspect]
     Active Substance: RABEPRAZOLE
     Route: 065
  237. RABEPRAZOLE [Suspect]
     Active Substance: RABEPRAZOLE
     Route: 065
  238. RABEPRAZOLE [Suspect]
     Active Substance: RABEPRAZOLE
     Route: 065
  239. RABEPRAZOLE [Suspect]
     Active Substance: RABEPRAZOLE
     Route: 065
  240. RABEPRAZOLE [Suspect]
     Active Substance: RABEPRAZOLE
     Route: 065
  241. RABEPRAZOLE [Suspect]
     Active Substance: RABEPRAZOLE
     Route: 065
  242. RABEPRAZOLE [Suspect]
     Active Substance: RABEPRAZOLE
     Route: 065
  243. RABEPRAZOLE [Suspect]
     Active Substance: RABEPRAZOLE
     Route: 065
  244. RABEPRAZOLE [Suspect]
     Active Substance: RABEPRAZOLE
     Route: 065
  245. RABEPRAZOLE [Suspect]
     Active Substance: RABEPRAZOLE
     Route: 065
  246. RABEPRAZOLE [Suspect]
     Active Substance: RABEPRAZOLE
     Route: 065
  247. RABEPRAZOLE [Suspect]
     Active Substance: RABEPRAZOLE
     Route: 065
  248. RABEPRAZOLE [Suspect]
     Active Substance: RABEPRAZOLE
     Route: 065
  249. RABEPRAZOLE [Suspect]
     Active Substance: RABEPRAZOLE
     Route: 065
  250. RABEPRAZOLE [Suspect]
     Active Substance: RABEPRAZOLE
     Route: 048
  251. RABEPRAZOLE [Suspect]
     Active Substance: RABEPRAZOLE
     Route: 048
  252. RABEPRAZOLE [Suspect]
     Active Substance: RABEPRAZOLE
     Dosage: RABEPRAZOLE
     Route: 048
  253. RABEPRAZOLE [Suspect]
     Active Substance: RABEPRAZOLE
     Dosage: RABEPRAZOLE
     Route: 048
  254. RABEPRAZOLE [Suspect]
     Active Substance: RABEPRAZOLE
     Route: 065
  255. RABEPRAZOLE [Suspect]
     Active Substance: RABEPRAZOLE
     Route: 048
  256. RABEPRAZOLE [Suspect]
     Active Substance: RABEPRAZOLE
     Dosage: RABEPRAZOLE
     Route: 065
  257. RABEPRAZOLE [Suspect]
     Active Substance: RABEPRAZOLE
     Dosage: RABEPRAZOLE
     Route: 065
  258. RABEPRAZOLE [Suspect]
     Active Substance: RABEPRAZOLE
     Dosage: RABEPRAZOLE
     Route: 065
  259. RABEPRAZOLE [Suspect]
     Active Substance: RABEPRAZOLE
     Route: 065
  260. RABEPRAZOLE [Suspect]
     Active Substance: RABEPRAZOLE
     Route: 048
  261. RABEPRAZOLE [Suspect]
     Active Substance: RABEPRAZOLE
     Dosage: RABEPRAZOLE SODIUM
     Route: 048
  262. RABEPRAZOLE [Suspect]
     Active Substance: RABEPRAZOLE
     Dosage: RABEPRAZOLE SODIUM
     Route: 065
  263. RABEPRAZOLE [Suspect]
     Active Substance: RABEPRAZOLE
     Route: 065
  264. RABEPRAZOLE [Suspect]
     Active Substance: RABEPRAZOLE
     Route: 065
  265. RABEPRAZOLE [Suspect]
     Active Substance: RABEPRAZOLE
     Dosage: RABEPRAZOLE
     Route: 065
  266. RABEPRAZOLE [Suspect]
     Active Substance: RABEPRAZOLE
     Dosage: RABEPRAZOLE
     Route: 065
  267. RABEPRAZOLE [Suspect]
     Active Substance: RABEPRAZOLE
     Dosage: RABEPRAZOLE, 2 ADMINISTRATIONS GIVEN
     Route: 065
  268. RABEPRAZOLE [Suspect]
     Active Substance: RABEPRAZOLE
     Dosage: RABEPRAZOLE
     Route: 065
  269. RABEPRAZOLE [Suspect]
     Active Substance: RABEPRAZOLE
     Dosage: RABEPRAZOLE
     Route: 065
  270. RABEPRAZOLE [Suspect]
     Active Substance: RABEPRAZOLE
     Dosage: RABEPRAZOLE
     Route: 065
  271. RABEPRAZOLE [Suspect]
     Active Substance: RABEPRAZOLE
     Dosage: RABEPRAZOLE, 2 ADMINISTRATIONS GIVEN
     Route: 065
  272. RABEPRAZOLE [Suspect]
     Active Substance: RABEPRAZOLE
     Dosage: RABEPRAZOLE, 2 ADMINISTRATIONS GIVEN
     Route: 065
  273. RABEPRAZOLE [Suspect]
     Active Substance: RABEPRAZOLE
     Dosage: RABEPRAZOLE, 2 ADMINISTRATIONS GIVEN
     Route: 065
  274. RABEPRAZOLE [Suspect]
     Active Substance: RABEPRAZOLE
     Dosage: RABEPRAZOLE, 2 ADMINISTRATIONS GIVEN
     Route: 065
  275. RABEPRAZOLE [Suspect]
     Active Substance: RABEPRAZOLE
     Dosage: RABEPRAZOLE, 2 ADMINISTRATIONS GIVEN
     Route: 065
  276. RABEPRAZOLE [Suspect]
     Active Substance: RABEPRAZOLE
     Dosage: RABEPRAZOLE, 2 ADMINISTRATIONS GIVEN
     Route: 065
  277. RABEPRAZOLE [Suspect]
     Active Substance: RABEPRAZOLE
     Dosage: RABEPRAZOLE, 2 ADMINISTRATIONS GIVEN
     Route: 065
  278. RABEPRAZOLE [Suspect]
     Active Substance: RABEPRAZOLE
     Route: 065
  279. RABEPRAZOLE [Suspect]
     Active Substance: RABEPRAZOLE
     Route: 065
  280. RABEPRAZOLE [Suspect]
     Active Substance: RABEPRAZOLE
     Route: 065
  281. RABEPRAZOLE [Suspect]
     Active Substance: RABEPRAZOLE
     Route: 065
  282. RABEPRAZOLE [Suspect]
     Active Substance: RABEPRAZOLE
     Route: 065
  283. RABEPRAZOLE [Suspect]
     Active Substance: RABEPRAZOLE
     Route: 065
  284. RABEPRAZOLE [Suspect]
     Active Substance: RABEPRAZOLE
     Route: 065
  285. RABEPRAZOLE [Suspect]
     Active Substance: RABEPRAZOLE
     Route: 065
  286. RABEPRAZOLE [Suspect]
     Active Substance: RABEPRAZOLE
     Route: 065
  287. RABEPRAZOLE [Suspect]
     Active Substance: RABEPRAZOLE
     Route: 065
  288. RABEPRAZOLE [Suspect]
     Active Substance: RABEPRAZOLE
     Route: 065
  289. RABEPRAZOLE [Suspect]
     Active Substance: RABEPRAZOLE
     Route: 065
  290. RABEPRAZOLE [Suspect]
     Active Substance: RABEPRAZOLE
     Route: 065
  291. RABEPRAZOLE [Suspect]
     Active Substance: RABEPRAZOLE
     Route: 065
  292. RABEPRAZOLE [Suspect]
     Active Substance: RABEPRAZOLE
     Route: 065
  293. RABEPRAZOLE [Suspect]
     Active Substance: RABEPRAZOLE
     Route: 065
  294. RABEPRAZOLE [Suspect]
     Active Substance: RABEPRAZOLE
     Route: 065
  295. RABEPRAZOLE [Suspect]
     Active Substance: RABEPRAZOLE
     Route: 065
  296. RABEPRAZOLE [Suspect]
     Active Substance: RABEPRAZOLE
     Route: 065
  297. TOPIRAMATE [Suspect]
     Active Substance: TOPIRAMATE
     Indication: Migraine
     Route: 065
  298. TOPIRAMATE [Suspect]
     Active Substance: TOPIRAMATE
     Route: 065
  299. TRIMETHOPRIM [Suspect]
     Active Substance: TRIMETHOPRIM
     Indication: Product used for unknown indication
     Route: 065
  300. TRIMETHOPRIM [Suspect]
     Active Substance: TRIMETHOPRIM
     Route: 065
  301. TRIMETHOPRIM [Suspect]
     Active Substance: TRIMETHOPRIM
     Route: 065
  302. TRIMETHOPRIM [Suspect]
     Active Substance: TRIMETHOPRIM
     Route: 065
  303. ZOPICLONE [Suspect]
     Active Substance: ZOPICLONE
     Indication: Migraine
     Route: 065
  304. ZOPICLONE [Suspect]
     Active Substance: ZOPICLONE
     Route: 048
  305. ZOPICLONE [Suspect]
     Active Substance: ZOPICLONE
     Route: 065
  306. ZOPICLONE [Suspect]
     Active Substance: ZOPICLONE
     Route: 065
  307. ZOPICLONE [Suspect]
     Active Substance: ZOPICLONE
     Route: 065
  308. ZOPICLONE [Suspect]
     Active Substance: ZOPICLONE
     Route: 065
  309. ZOPICLONE [Suspect]
     Active Substance: ZOPICLONE
     Route: 065
  310. ZOPICLONE [Suspect]
     Active Substance: ZOPICLONE
     Route: 065
  311. ZOPICLONE [Suspect]
     Active Substance: ZOPICLONE
     Route: 065
  312. ZOPICLONE [Suspect]
     Active Substance: ZOPICLONE
     Route: 065
  313. ZOPICLONE [Suspect]
     Active Substance: ZOPICLONE
     Route: 065
  314. ZOPICLONE [Suspect]
     Active Substance: ZOPICLONE
     Route: 065
  315. ZOPICLONE [Suspect]
     Active Substance: ZOPICLONE
     Route: 065
  316. ZOPICLONE [Suspect]
     Active Substance: ZOPICLONE
     Route: 065
  317. ZOPICLONE [Suspect]
     Active Substance: ZOPICLONE
     Route: 065
  318. ZOPICLONE [Suspect]
     Active Substance: ZOPICLONE
     Route: 065
  319. ZOPICLONE [Suspect]
     Active Substance: ZOPICLONE
     Route: 065
  320. ZOPICLONE [Suspect]
     Active Substance: ZOPICLONE
     Route: 065
  321. ZOPICLONE [Suspect]
     Active Substance: ZOPICLONE
     Route: 065
  322. ZOPICLONE [Suspect]
     Active Substance: ZOPICLONE
     Route: 065
  323. ZOPICLONE [Suspect]
     Active Substance: ZOPICLONE
     Route: 065
  324. ZOPICLONE [Suspect]
     Active Substance: ZOPICLONE
     Route: 065
  325. ZOPICLONE [Suspect]
     Active Substance: ZOPICLONE
     Route: 065
  326. ZOPICLONE [Suspect]
     Active Substance: ZOPICLONE
     Route: 065
  327. ZOPICLONE [Suspect]
     Active Substance: ZOPICLONE
     Route: 065
  328. ZOPICLONE [Suspect]
     Active Substance: ZOPICLONE
     Route: 065
  329. ZOPICLONE [Suspect]
     Active Substance: ZOPICLONE
     Route: 065
  330. ZOPICLONE [Suspect]
     Active Substance: ZOPICLONE
     Route: 065
  331. ZOPICLONE [Suspect]
     Active Substance: ZOPICLONE
     Route: 065
  332. ZOPICLONE [Suspect]
     Active Substance: ZOPICLONE
     Route: 048
  333. ZOPICLONE [Suspect]
     Active Substance: ZOPICLONE
     Route: 065
  334. ZOPICLONE [Suspect]
     Active Substance: ZOPICLONE
     Route: 065
  335. ZOPICLONE [Suspect]
     Active Substance: ZOPICLONE
     Route: 065
  336. ZOPICLONE [Suspect]
     Active Substance: ZOPICLONE
     Route: 065
  337. ZOPICLONE [Suspect]
     Active Substance: ZOPICLONE
     Dosage: 19 ADMINISTRATIONS
     Route: 065
  338. ZOPICLONE [Suspect]
     Active Substance: ZOPICLONE
     Route: 065
  339. ZOPICLONE [Suspect]
     Active Substance: ZOPICLONE
     Route: 065
  340. SUMATRIPTAN [Suspect]
     Active Substance: SUMATRIPTAN
     Indication: Migraine
     Route: 065
  341. SUMATRIPTAN [Suspect]
     Active Substance: SUMATRIPTAN
     Route: 065
  342. SUMATRIPTAN [Suspect]
     Active Substance: SUMATRIPTAN
     Route: 065
  343. SUMATRIPTAN [Suspect]
     Active Substance: SUMATRIPTAN
     Route: 065
  344. SUMATRIPTAN [Suspect]
     Active Substance: SUMATRIPTAN
     Route: 065
  345. SUMATRIPTAN [Suspect]
     Active Substance: SUMATRIPTAN
     Route: 065
  346. SUMATRIPTAN [Suspect]
     Active Substance: SUMATRIPTAN
     Route: 065
  347. SUMATRIPTAN [Suspect]
     Active Substance: SUMATRIPTAN
     Route: 058
  348. SUMATRIPTAN [Suspect]
     Active Substance: SUMATRIPTAN
     Route: 065
  349. SUMATRIPTAN [Suspect]
     Active Substance: SUMATRIPTAN
     Route: 065
  350. SERTRALINE [Suspect]
     Active Substance: SERTRALINE HYDROCHLORIDE
     Indication: Migraine
     Route: 065
  351. SERTRALINE [Suspect]
     Active Substance: SERTRALINE HYDROCHLORIDE
     Route: 065
  352. SERTRALINE [Suspect]
     Active Substance: SERTRALINE HYDROCHLORIDE
     Route: 065
  353. SERTRALINE [Suspect]
     Active Substance: SERTRALINE HYDROCHLORIDE
     Route: 065
  354. SERTRALINE [Suspect]
     Active Substance: SERTRALINE HYDROCHLORIDE
     Route: 065
  355. SERTRALINE [Suspect]
     Active Substance: SERTRALINE HYDROCHLORIDE
     Route: 065
  356. SERTRALINE [Suspect]
     Active Substance: SERTRALINE HYDROCHLORIDE
     Route: 065
  357. PROPRANOLOL [Suspect]
     Active Substance: PROPRANOLOL HYDROCHLORIDE
     Indication: Migraine
     Route: 065
  358. PROPRANOLOL [Suspect]
     Active Substance: PROPRANOLOL HYDROCHLORIDE
     Indication: Product used for unknown indication
     Route: 065
  359. PROPRANOLOL [Suspect]
     Active Substance: PROPRANOLOL HYDROCHLORIDE
     Route: 048
  360. PROPRANOLOL [Suspect]
     Active Substance: PROPRANOLOL HYDROCHLORIDE
     Route: 048
  361. PROPRANOLOL [Suspect]
     Active Substance: PROPRANOLOL HYDROCHLORIDE
     Route: 065
  362. PROPRANOLOL [Suspect]
     Active Substance: PROPRANOLOL HYDROCHLORIDE
     Dosage: PROPRANOLOL (3 YEARS)
     Route: 065
  363. PROPRANOLOL [Suspect]
     Active Substance: PROPRANOLOL HYDROCHLORIDE
     Route: 065
  364. PROPRANOLOL [Suspect]
     Active Substance: PROPRANOLOL HYDROCHLORIDE
     Route: 065
  365. PROPRANOLOL [Suspect]
     Active Substance: PROPRANOLOL HYDROCHLORIDE
     Route: 065
  366. PROPRANOLOL [Suspect]
     Active Substance: PROPRANOLOL HYDROCHLORIDE
     Route: 065
  367. PROPRANOLOL [Suspect]
     Active Substance: PROPRANOLOL HYDROCHLORIDE
     Route: 048
  368. PROPRANOLOL [Suspect]
     Active Substance: PROPRANOLOL HYDROCHLORIDE
     Route: 065
  369. PROPRANOLOL [Suspect]
     Active Substance: PROPRANOLOL HYDROCHLORIDE
     Route: 048
  370. PROPRANOLOL [Suspect]
     Active Substance: PROPRANOLOL HYDROCHLORIDE
     Route: 065
  371. PROPRANOLOL [Suspect]
     Active Substance: PROPRANOLOL HYDROCHLORIDE
     Route: 048
  372. PROPRANOLOL [Suspect]
     Active Substance: PROPRANOLOL HYDROCHLORIDE
     Route: 048
  373. PROPRANOLOL [Suspect]
     Active Substance: PROPRANOLOL HYDROCHLORIDE
     Route: 048
  374. PROPRANOLOL [Suspect]
     Active Substance: PROPRANOLOL HYDROCHLORIDE
     Route: 065
  375. PROPRANOLOL [Suspect]
     Active Substance: PROPRANOLOL HYDROCHLORIDE
     Dosage: PROPRANOLOL
     Route: 065
  376. PROPRANOLOL [Suspect]
     Active Substance: PROPRANOLOL HYDROCHLORIDE
     Route: 065
  377. PROPRANOLOL [Suspect]
     Active Substance: PROPRANOLOL HYDROCHLORIDE
     Route: 065
  378. PROPRANOLOL [Suspect]
     Active Substance: PROPRANOLOL HYDROCHLORIDE
     Route: 048
  379. PROPRANOLOL [Suspect]
     Active Substance: PROPRANOLOL HYDROCHLORIDE
     Route: 048
  380. PROPRANOLOL [Suspect]
     Active Substance: PROPRANOLOL HYDROCHLORIDE
     Route: 065
  381. PROPRANOLOL [Suspect]
     Active Substance: PROPRANOLOL HYDROCHLORIDE
     Route: 065
  382. PROPRANOLOL [Suspect]
     Active Substance: PROPRANOLOL HYDROCHLORIDE
     Route: 065
  383. LANSOPRAZOLE [Suspect]
     Active Substance: LANSOPRAZOLE
     Indication: Migraine
     Route: 065
  384. LANSOPRAZOLE [Suspect]
     Active Substance: LANSOPRAZOLE
     Route: 065
  385. LANSOPRAZOLE [Suspect]
     Active Substance: LANSOPRAZOLE
     Route: 065
  386. LANSOPRAZOLE [Suspect]
     Active Substance: LANSOPRAZOLE
     Route: 065
  387. ESCITALOPRAM [Suspect]
     Active Substance: ESCITALOPRAM OXALATE
     Indication: Migraine
     Route: 065
  388. ESCITALOPRAM [Suspect]
     Active Substance: ESCITALOPRAM OXALATE
     Route: 065
  389. ESCITALOPRAM [Suspect]
     Active Substance: ESCITALOPRAM OXALATE
     Route: 048
  390. ESCITALOPRAM [Suspect]
     Active Substance: ESCITALOPRAM OXALATE
     Route: 065
  391. ESCITALOPRAM [Suspect]
     Active Substance: ESCITALOPRAM OXALATE
     Route: 065
  392. RIZATRIPTAN BENZOATE [Suspect]
     Active Substance: RIZATRIPTAN BENZOATE
     Indication: Migraine
     Route: 065
  393. RIZATRIPTAN BENZOATE [Suspect]
     Active Substance: RIZATRIPTAN BENZOATE
     Indication: Product used for unknown indication
     Route: 065
  394. RIZATRIPTAN BENZOATE [Suspect]
     Active Substance: RIZATRIPTAN BENZOATE
     Route: 065
  395. RIZATRIPTAN BENZOATE [Suspect]
     Active Substance: RIZATRIPTAN BENZOATE
     Dosage: RIZATRIPTAN
     Route: 065
  396. RIZATRIPTAN BENZOATE [Suspect]
     Active Substance: RIZATRIPTAN BENZOATE
     Dosage: RIZATRIPTAN
     Route: 065
  397. RIZATRIPTAN BENZOATE [Suspect]
     Active Substance: RIZATRIPTAN BENZOATE
     Dosage: RIZATRIPTAN BENZOATE
     Route: 065
  398. RIZATRIPTAN BENZOATE [Suspect]
     Active Substance: RIZATRIPTAN BENZOATE
     Route: 065
  399. RIZATRIPTAN BENZOATE [Suspect]
     Active Substance: RIZATRIPTAN BENZOATE
     Route: 065
  400. RIZATRIPTAN BENZOATE [Suspect]
     Active Substance: RIZATRIPTAN BENZOATE
     Dosage: RIZATRIPTAN BENZOATE
     Route: 065
  401. RIZATRIPTAN BENZOATE [Suspect]
     Active Substance: RIZATRIPTAN BENZOATE
     Route: 065
  402. RIZATRIPTAN BENZOATE [Suspect]
     Active Substance: RIZATRIPTAN BENZOATE
     Dosage: RIZATRIPTAN
     Route: 065
  403. RIZATRIPTAN BENZOATE [Suspect]
     Active Substance: RIZATRIPTAN BENZOATE
     Dosage: RIZATRIPTAN, 2 ADMINISTRATIONS GIVEN
     Route: 065
  404. BOTULINUM TOXIN TYPE A [Suspect]
     Active Substance: BOTULINUM TOXIN TYPE A
     Indication: Product used for unknown indication
     Route: 065
  405. BOTULINUM TOXIN TYPE A [Suspect]
     Active Substance: BOTULINUM TOXIN TYPE A
     Route: 065
  406. BOTULINUM TOXIN TYPE A [Suspect]
     Active Substance: BOTULINUM TOXIN TYPE A
     Route: 065
  407. BOTULINUM TOXIN TYPE A [Suspect]
     Active Substance: BOTULINUM TOXIN TYPE A
     Route: 030
  408. BOTULINUM TOXIN TYPE A [Suspect]
     Active Substance: BOTULINUM TOXIN TYPE A
     Route: 065
  409. BOTULINUM TOXIN TYPE A [Suspect]
     Active Substance: BOTULINUM TOXIN TYPE A
     Route: 030
  410. BOTULINUM TOXIN TYPE A [Suspect]
     Active Substance: BOTULINUM TOXIN TYPE A
     Route: 065
  411. BOTULINUM TOXIN TYPE A [Suspect]
     Active Substance: BOTULINUM TOXIN TYPE A
     Route: 065
  412. BOTULINUM TOXIN TYPE A [Suspect]
     Active Substance: BOTULINUM TOXIN TYPE A
     Route: 065
  413. BOTULINUM TOXIN TYPE A [Suspect]
     Active Substance: BOTULINUM TOXIN TYPE A
     Route: 065
  414. BOTULINUM TOXIN TYPE A [Suspect]
     Active Substance: BOTULINUM TOXIN TYPE A
     Route: 065
  415. BOTULINUM TOXIN TYPE A [Suspect]
     Active Substance: BOTULINUM TOXIN TYPE A
     Route: 065
  416. BOTULINUM TOXIN TYPE A [Suspect]
     Active Substance: BOTULINUM TOXIN TYPE A
     Route: 065
  417. BOTULINUM TOXIN TYPE A [Suspect]
     Active Substance: BOTULINUM TOXIN TYPE A
     Route: 065
  418. BOTULINUM TOXIN TYPE A [Suspect]
     Active Substance: BOTULINUM TOXIN TYPE A
     Route: 065
  419. BOTULINUM TOXIN TYPE A [Suspect]
     Active Substance: BOTULINUM TOXIN TYPE A
     Route: 065
  420. BOTULINUM TOXIN TYPE A [Suspect]
     Active Substance: BOTULINUM TOXIN TYPE A
     Route: 065
  421. BOTULINUM TOXIN TYPE A [Suspect]
     Active Substance: BOTULINUM TOXIN TYPE A
     Route: 030
  422. BOTULINUM TOXIN TYPE A [Suspect]
     Active Substance: BOTULINUM TOXIN TYPE A
     Route: 065
  423. BOTULINUM TOXIN TYPE A [Suspect]
     Active Substance: BOTULINUM TOXIN TYPE A
     Route: 065
  424. BOTULINUM TOXIN TYPE A [Suspect]
     Active Substance: BOTULINUM TOXIN TYPE A
     Route: 065
  425. BOTULINUM TOXIN TYPE A [Suspect]
     Active Substance: BOTULINUM TOXIN TYPE A
     Route: 065
  426. BOTULINUM TOXIN TYPE A [Suspect]
     Active Substance: BOTULINUM TOXIN TYPE A
     Route: 065
  427. BOTULINUM TOXIN TYPE A [Suspect]
     Active Substance: BOTULINUM TOXIN TYPE A
     Route: 065
  428. BOTULINUM TOXIN TYPE A [Suspect]
     Active Substance: BOTULINUM TOXIN TYPE A
     Route: 065
  429. BOTULINUM TOXIN TYPE A [Suspect]
     Active Substance: BOTULINUM TOXIN TYPE A
     Route: 065
  430. AMOXICILLIN [Suspect]
     Active Substance: AMOXICILLIN
     Indication: Product used for unknown indication
     Route: 065
  431. AMOXICILLIN [Suspect]
     Active Substance: AMOXICILLIN
     Route: 065
  432. AMOXICILLIN [Suspect]
     Active Substance: AMOXICILLIN
     Dosage: AMOXICILLIN TRIHYDRATE
     Route: 065
  433. AMOXICILLIN [Suspect]
     Active Substance: AMOXICILLIN
     Dosage: AMOXICILLIN
     Route: 065
  434. AMOXICILLIN [Suspect]
     Active Substance: AMOXICILLIN
     Dosage: AMOXICILLIN (3 ADMINISTRATION); AMOXICILLIN TRIHYDRATE
     Route: 065
  435. AMOXICILLIN [Suspect]
     Active Substance: AMOXICILLIN
     Route: 065
  436. AMOXICILLIN [Suspect]
     Active Substance: AMOXICILLIN
     Dosage: AMOXICILLIN TRIHYDRATE
     Route: 065
  437. AMOXICILLIN [Suspect]
     Active Substance: AMOXICILLIN
     Dosage: AMOXICILLIN TRIHYDRATE
     Route: 065
  438. AMOXICILLIN [Suspect]
     Active Substance: AMOXICILLIN
     Dosage: AMOXICILLIN
     Route: 065
  439. AMOXICILLIN [Suspect]
     Active Substance: AMOXICILLIN
     Dosage: AMOXICILLIN
     Route: 065
  440. AMOXICILLIN [Suspect]
     Active Substance: AMOXICILLIN
     Route: 065
  441. AMOXICILLIN [Suspect]
     Active Substance: AMOXICILLIN
     Route: 065
  442. AMOXICILLIN [Suspect]
     Active Substance: AMOXICILLIN
     Dosage: AMOXICILLIN TRIHYDRATE
     Route: 065
  443. AMOXICILLIN [Suspect]
     Active Substance: AMOXICILLIN
     Dosage: AMOXICILLIN TRIHYDRATE,
     Route: 065
  444. AMOXICILLIN [Suspect]
     Active Substance: AMOXICILLIN
     Dosage: AMOXICILLIN TRIHYDRATE
     Route: 065
  445. AMOXICILLIN [Suspect]
     Active Substance: AMOXICILLIN
     Dosage: AMOXICILLIN TRIHYDRATE
     Route: 065
  446. AMOXICILLIN [Suspect]
     Active Substance: AMOXICILLIN
     Route: 065
  447. AMOXICILLIN [Suspect]
     Active Substance: AMOXICILLIN
     Route: 065
  448. AMOXICILLIN [Suspect]
     Active Substance: AMOXICILLIN
     Dosage: AMOXICILLIN SODIUM
     Route: 065
  449. AMOXICILLIN [Suspect]
     Active Substance: AMOXICILLIN
     Dosage: AMOXICILLIN SODIUM
     Route: 065
  450. AMOXICILLIN [Suspect]
     Active Substance: AMOXICILLIN
     Dosage: AMOXICILLIN SODIUM
     Route: 065
  451. AMOXICILLIN [Suspect]
     Active Substance: AMOXICILLIN
     Route: 065
  452. AMOXICILLIN [Suspect]
     Active Substance: AMOXICILLIN
     Dosage: SANDOZ AMOXICILLIN
     Route: 065
  453. METOCLOPRAMIDE [Suspect]
     Active Substance: METOCLOPRAMIDE
     Indication: Migraine
     Route: 065
  454. METOCLOPRAMIDE [Suspect]
     Active Substance: METOCLOPRAMIDE
     Route: 065
  455. METOCLOPRAMIDE [Suspect]
     Active Substance: METOCLOPRAMIDE
     Route: 065
  456. METOCLOPRAMIDE [Suspect]
     Active Substance: METOCLOPRAMIDE
     Route: 065
  457. METOCLOPRAMIDE [Suspect]
     Active Substance: METOCLOPRAMIDE
     Route: 065
  458. METOCLOPRAMIDE [Suspect]
     Active Substance: METOCLOPRAMIDE
     Route: 065
  459. METOCLOPRAMIDE [Suspect]
     Active Substance: METOCLOPRAMIDE
     Route: 065
  460. METOCLOPRAMIDE [Suspect]
     Active Substance: METOCLOPRAMIDE
     Route: 065
  461. METOCLOPRAMIDE [Suspect]
     Active Substance: METOCLOPRAMIDE
     Route: 065
  462. METOCLOPRAMIDE [Suspect]
     Active Substance: METOCLOPRAMIDE
     Route: 065
  463. METOCLOPRAMIDE [Suspect]
     Active Substance: METOCLOPRAMIDE
     Route: 065
  464. METOCLOPRAMIDE [Suspect]
     Active Substance: METOCLOPRAMIDE
     Route: 065
  465. METOCLOPRAMIDE [Suspect]
     Active Substance: METOCLOPRAMIDE
     Route: 065
  466. TRAMADOL HYDROCHLORIDE [Suspect]
     Active Substance: TRAMADOL HYDROCHLORIDE
     Indication: Product used for unknown indication
     Route: 065
  467. TRAMADOL HYDROCHLORIDE [Suspect]
     Active Substance: TRAMADOL HYDROCHLORIDE
     Route: 048
  468. DEXAMETHASONE [Suspect]
     Active Substance: DEXAMETHASONE
     Indication: Migraine
     Route: 065
  469. DEXAMETHASONE [Suspect]
     Active Substance: DEXAMETHASONE
     Route: 048
  470. DEXAMETHASONE [Suspect]
     Active Substance: DEXAMETHASONE
     Route: 065
  471. DEXAMETHASONE [Suspect]
     Active Substance: DEXAMETHASONE
     Route: 065
  472. DEXAMETHASONE [Suspect]
     Active Substance: DEXAMETHASONE
     Route: 065
  473. DEXAMETHASONE [Suspect]
     Active Substance: DEXAMETHASONE
     Route: 065
  474. DEXAMETHASONE [Suspect]
     Active Substance: DEXAMETHASONE
     Dosage: DEXAMETHASONE SODIUM PHOSPHATE
     Route: 065
  475. DEXAMETHASONE [Suspect]
     Active Substance: DEXAMETHASONE
     Route: 065
  476. DEXAMETHASONE [Suspect]
     Active Substance: DEXAMETHASONE
     Route: 065
  477. ZOLMITRIPTAN [Suspect]
     Active Substance: ZOLMITRIPTAN
     Indication: Migraine
     Route: 065
  478. ZOLMITRIPTAN [Suspect]
     Active Substance: ZOLMITRIPTAN
     Indication: Product used for unknown indication
     Route: 065
  479. ZOLMITRIPTAN [Suspect]
     Active Substance: ZOLMITRIPTAN
     Route: 065
  480. ZOLMITRIPTAN [Suspect]
     Active Substance: ZOLMITRIPTAN
     Route: 065
  481. ZOLMITRIPTAN [Suspect]
     Active Substance: ZOLMITRIPTAN
     Route: 065
  482. ZOLMITRIPTAN [Suspect]
     Active Substance: ZOLMITRIPTAN
     Route: 065
  483. ZOLMITRIPTAN [Suspect]
     Active Substance: ZOLMITRIPTAN
     Route: 048
  484. ZOLMITRIPTAN [Suspect]
     Active Substance: ZOLMITRIPTAN
     Route: 065
  485. SCOPOLAMINE [Suspect]
     Active Substance: SCOPOLAMINE
     Indication: Migraine
     Route: 065
  486. SCOPOLAMINE [Suspect]
     Active Substance: SCOPOLAMINE
     Route: 065
  487. SCOPOLAMINE [Suspect]
     Active Substance: SCOPOLAMINE
     Route: 065
  488. SCOPOLAMINE [Suspect]
     Active Substance: SCOPOLAMINE
     Route: 065
  489. SCOPOLAMINE [Suspect]
     Active Substance: SCOPOLAMINE
     Route: 065
  490. SCOPOLAMINE [Suspect]
     Active Substance: SCOPOLAMINE
     Dosage: HYOSCINE BUTYLBROMIDE
     Route: 065
  491. SCOPOLAMINE [Suspect]
     Active Substance: SCOPOLAMINE
     Dosage: HYOSCINE BUTYLBROMIDE
     Route: 065
  492. SCOPOLAMINE [Suspect]
     Active Substance: SCOPOLAMINE
     Route: 065
  493. SCOPOLAMINE [Suspect]
     Active Substance: SCOPOLAMINE
     Route: 065
  494. SCOPOLAMINE [Suspect]
     Active Substance: SCOPOLAMINE
     Dosage: HYOSCINE BUTYLBROMIDE
     Route: 065
  495. SCOPOLAMINE [Suspect]
     Active Substance: SCOPOLAMINE
     Route: 065
  496. ACETAMINOPHEN\BUTYLSCOPOLAMINE BROMIDE [Suspect]
     Active Substance: ACETAMINOPHEN\BUTYLSCOPOLAMINE BROMIDE
     Indication: Migraine
     Route: 065
  497. ACETAMINOPHEN\BUTYLSCOPOLAMINE BROMIDE [Suspect]
     Active Substance: ACETAMINOPHEN\BUTYLSCOPOLAMINE BROMIDE
     Indication: Product used for unknown indication
     Route: 065
  498. INDOMETHACIN [Suspect]
     Active Substance: INDOMETHACIN
     Indication: Migraine
     Dosage: 26 ADMINISTRATIONS
     Route: 054
  499. INDOMETHACIN [Suspect]
     Active Substance: INDOMETHACIN
     Route: 054
  500. INDOMETHACIN [Suspect]
     Active Substance: INDOMETHACIN
     Route: 054
  501. INDOMETHACIN [Suspect]
     Active Substance: INDOMETHACIN
     Route: 054
  502. INDOMETHACIN [Suspect]
     Active Substance: INDOMETHACIN
     Route: 054
  503. INDOMETHACIN [Suspect]
     Active Substance: INDOMETHACIN
     Route: 054
  504. INDOMETHACIN [Suspect]
     Active Substance: INDOMETHACIN
     Route: 054
  505. INDOMETHACIN [Suspect]
     Active Substance: INDOMETHACIN
     Route: 054
  506. INDOMETHACIN [Suspect]
     Active Substance: INDOMETHACIN
     Route: 054
  507. INDOMETHACIN [Suspect]
     Active Substance: INDOMETHACIN
     Route: 054
  508. INDOMETHACIN [Suspect]
     Active Substance: INDOMETHACIN
     Route: 054
  509. INDOMETHACIN [Suspect]
     Active Substance: INDOMETHACIN
     Route: 054
  510. INDOMETHACIN [Suspect]
     Active Substance: INDOMETHACIN
     Route: 054
  511. INDOMETHACIN [Suspect]
     Active Substance: INDOMETHACIN
     Route: 065
  512. INDOMETHACIN [Suspect]
     Active Substance: INDOMETHACIN
     Route: 054
  513. INDOMETHACIN [Suspect]
     Active Substance: INDOMETHACIN
     Route: 054
  514. INDOMETHACIN [Suspect]
     Active Substance: INDOMETHACIN
     Route: 065
  515. INDOMETHACIN [Suspect]
     Active Substance: INDOMETHACIN
     Route: 054
  516. INDOMETHACIN [Suspect]
     Active Substance: INDOMETHACIN
     Route: 054
  517. INDOMETHACIN [Suspect]
     Active Substance: INDOMETHACIN
     Route: 054
  518. INDOMETHACIN [Suspect]
     Active Substance: INDOMETHACIN
     Route: 065
  519. INDOMETHACIN [Suspect]
     Active Substance: INDOMETHACIN
     Route: 065
  520. INDOMETHACIN [Suspect]
     Active Substance: INDOMETHACIN
     Route: 054
  521. INDOMETHACIN [Suspect]
     Active Substance: INDOMETHACIN
     Dosage: INDOMETHACIN
     Route: 054
  522. INDOMETHACIN [Suspect]
     Active Substance: INDOMETHACIN
     Dosage: INDOMETHACIN
     Route: 054
  523. INDOMETHACIN [Suspect]
     Active Substance: INDOMETHACIN
     Dosage: INDOMETHACIN
     Route: 054
  524. INDOMETHACIN [Suspect]
     Active Substance: INDOMETHACIN
     Dosage: INDOMETHACIN
     Route: 054
  525. INDOMETHACIN [Suspect]
     Active Substance: INDOMETHACIN
     Dosage: INDOMETHACIN
     Route: 054
  526. INDOMETHACIN [Suspect]
     Active Substance: INDOMETHACIN
     Dosage: INDOMETHACIN
     Route: 054
  527. INDOMETHACIN [Suspect]
     Active Substance: INDOMETHACIN
     Dosage: INDOMETHACIN
     Route: 054
  528. INDOMETHACIN [Suspect]
     Active Substance: INDOMETHACIN
     Dosage: INDOMETHACIN
     Route: 054
  529. INDOMETHACIN [Suspect]
     Active Substance: INDOMETHACIN
     Dosage: INDOMETHACIN
     Route: 054
  530. INDOMETHACIN [Suspect]
     Active Substance: INDOMETHACIN
     Dosage: INDOMETHACIN
     Route: 054
  531. INDOMETHACIN [Suspect]
     Active Substance: INDOMETHACIN
     Dosage: INDOMETHACIN
     Route: 054
  532. INDOMETHACIN [Suspect]
     Active Substance: INDOMETHACIN
     Dosage: INDOMETHACIN
     Route: 054
  533. INDOMETHACIN [Suspect]
     Active Substance: INDOMETHACIN
     Dosage: INDOMETHACIN
     Route: 054
  534. INDOMETHACIN [Suspect]
     Active Substance: INDOMETHACIN
     Dosage: INDOMETHACIN
     Route: 054
  535. INDOMETHACIN [Suspect]
     Active Substance: INDOMETHACIN
     Dosage: INDOMETHACIN
     Route: 054
  536. INDOMETHACIN [Suspect]
     Active Substance: INDOMETHACIN
     Route: 054
  537. INDOMETHACIN [Suspect]
     Active Substance: INDOMETHACIN
     Route: 054
  538. INDOMETHACIN [Suspect]
     Active Substance: INDOMETHACIN
     Route: 054
  539. INDOMETHACIN [Suspect]
     Active Substance: INDOMETHACIN
     Route: 054
  540. INDOMETHACIN [Suspect]
     Active Substance: INDOMETHACIN
     Route: 054
  541. INDOMETHACIN [Suspect]
     Active Substance: INDOMETHACIN
     Route: 054
  542. INDOMETHACIN [Suspect]
     Active Substance: INDOMETHACIN
     Route: 065
  543. INDOMETHACIN [Suspect]
     Active Substance: INDOMETHACIN
     Route: 054
  544. INDOMETHACIN [Suspect]
     Active Substance: INDOMETHACIN
     Route: 054
  545. INDOMETHACIN [Suspect]
     Active Substance: INDOMETHACIN
     Route: 054
  546. INDOMETHACIN [Suspect]
     Active Substance: INDOMETHACIN
     Route: 054
  547. INDOMETHACIN [Suspect]
     Active Substance: INDOMETHACIN
     Route: 054
  548. INDOMETHACIN [Suspect]
     Active Substance: INDOMETHACIN
     Route: 054
  549. RABEPRAZOLE SODIUM [Suspect]
     Active Substance: RABEPRAZOLE SODIUM
     Indication: Migraine
     Route: 065
  550. RABEPRAZOLE SODIUM [Suspect]
     Active Substance: RABEPRAZOLE SODIUM
     Route: 048
  551. RABEPRAZOLE SODIUM [Suspect]
     Active Substance: RABEPRAZOLE SODIUM
     Route: 048
  552. RABEPRAZOLE SODIUM [Suspect]
     Active Substance: RABEPRAZOLE SODIUM
     Route: 048
  553. RABEPRAZOLE SODIUM [Suspect]
     Active Substance: RABEPRAZOLE SODIUM
     Route: 048
  554. RABEPRAZOLE SODIUM [Suspect]
     Active Substance: RABEPRAZOLE SODIUM
     Route: 048
  555. RABEPRAZOLE SODIUM [Suspect]
     Active Substance: RABEPRAZOLE SODIUM
     Route: 048
  556. RABEPRAZOLE SODIUM [Suspect]
     Active Substance: RABEPRAZOLE SODIUM
     Dosage: 7ADMINISTRATIONS
     Route: 048
  557. RABEPRAZOLE SODIUM [Suspect]
     Active Substance: RABEPRAZOLE SODIUM
     Route: 048
  558. RABEPRAZOLE SODIUM [Suspect]
     Active Substance: RABEPRAZOLE SODIUM
     Route: 048
  559. RABEPRAZOLE SODIUM [Suspect]
     Active Substance: RABEPRAZOLE SODIUM
     Route: 048
  560. RABEPRAZOLE SODIUM [Suspect]
     Active Substance: RABEPRAZOLE SODIUM
     Route: 048
  561. RABEPRAZOLE SODIUM [Suspect]
     Active Substance: RABEPRAZOLE SODIUM
     Route: 048
  562. RABEPRAZOLE SODIUM [Suspect]
     Active Substance: RABEPRAZOLE SODIUM
     Route: 048
  563. RABEPRAZOLE SODIUM [Suspect]
     Active Substance: RABEPRAZOLE SODIUM
     Route: 048
  564. RABEPRAZOLE SODIUM [Suspect]
     Active Substance: RABEPRAZOLE SODIUM
     Route: 048
  565. RABEPRAZOLE SODIUM [Suspect]
     Active Substance: RABEPRAZOLE SODIUM
     Route: 048
  566. RABEPRAZOLE SODIUM [Suspect]
     Active Substance: RABEPRAZOLE SODIUM
     Route: 048
  567. CLOTRIMAZOLE\FLUCONAZOLE [Suspect]
     Active Substance: CLOTRIMAZOLE\FLUCONAZOLE
     Indication: Product used for unknown indication
     Route: 065
  568. CLOTRIMAZOLE\FLUCONAZOLE [Suspect]
     Active Substance: CLOTRIMAZOLE\FLUCONAZOLE
     Route: 065
  569. CLOTRIMAZOLE\FLUCONAZOLE [Suspect]
     Active Substance: CLOTRIMAZOLE\FLUCONAZOLE
     Route: 065
  570. CLOTRIMAZOLE\FLUCONAZOLE [Suspect]
     Active Substance: CLOTRIMAZOLE\FLUCONAZOLE
     Route: 065
  571. ESOMEPRAZOLE [Suspect]
     Active Substance: ESOMEPRAZOLE
     Indication: Migraine
     Route: 065
  572. ESOMEPRAZOLE [Suspect]
     Active Substance: ESOMEPRAZOLE
     Route: 065
  573. ESOMEPRAZOLE [Suspect]
     Active Substance: ESOMEPRAZOLE
     Route: 048
  574. ESOMEPRAZOLE [Suspect]
     Active Substance: ESOMEPRAZOLE
     Route: 065
  575. ESOMEPRAZOLE [Suspect]
     Active Substance: ESOMEPRAZOLE
     Route: 065
  576. ESOMEPRAZOLE [Suspect]
     Active Substance: ESOMEPRAZOLE
     Route: 065
  577. ESOMEPRAZOLE [Suspect]
     Active Substance: ESOMEPRAZOLE
     Route: 065
  578. ACETAMINOPHEN\DIPHENHYDRAMINE HYDROCHLORIDE [Suspect]
     Active Substance: ACETAMINOPHEN\DIPHENHYDRAMINE HYDROCHLORIDE
     Indication: Product used for unknown indication
     Route: 065
  579. METRONIDAZOLE [Suspect]
     Active Substance: METRONIDAZOLE
     Indication: Product used for unknown indication
     Route: 065
  580. METRONIDAZOLE [Suspect]
     Active Substance: METRONIDAZOLE
     Indication: Migraine
  581. CLOTRIMAZOLE [Suspect]
     Active Substance: CLOTRIMAZOLE
     Indication: Product used for unknown indication
     Route: 065
  582. MAXALT [Suspect]
     Active Substance: RIZATRIPTAN BENZOATE
     Indication: Migraine
     Route: 065
  583. MAXALT [Suspect]
     Active Substance: RIZATRIPTAN BENZOATE
     Route: 065
  584. MAXALT [Suspect]
     Active Substance: RIZATRIPTAN BENZOATE
     Route: 065
  585. MAXALT [Suspect]
     Active Substance: RIZATRIPTAN BENZOATE
     Route: 065
  586. MAXALT [Suspect]
     Active Substance: RIZATRIPTAN BENZOATE
     Route: 065
  587. MAXALT [Suspect]
     Active Substance: RIZATRIPTAN BENZOATE
     Route: 065
  588. SCOPOLAMINE HYDROBROMIDE [Suspect]
     Active Substance: SCOPOLAMINE HYDROBROMIDE
     Indication: Product used for unknown indication
     Route: 065
  589. SCOPOLAMINE HYDROBROMIDE [Suspect]
     Active Substance: SCOPOLAMINE HYDROBROMIDE
     Route: 065
  590. SCOPOLAMINE HYDROBROMIDE [Suspect]
     Active Substance: SCOPOLAMINE HYDROBROMIDE
     Route: 065
  591. SCOPOLAMINE HYDROBROMIDE [Suspect]
     Active Substance: SCOPOLAMINE HYDROBROMIDE
     Route: 065
  592. CYMBALTA [Suspect]
     Active Substance: DULOXETINE HYDROCHLORIDE
     Indication: Product used for unknown indication
     Route: 065
  593. CYMBALTA [Suspect]
     Active Substance: DULOXETINE HYDROCHLORIDE
     Route: 065
  594. CYMBALTA [Suspect]
     Active Substance: DULOXETINE HYDROCHLORIDE
     Route: 065
  595. CYMBALTA [Suspect]
     Active Substance: DULOXETINE HYDROCHLORIDE
     Route: 065
  596. CYMBALTA [Suspect]
     Active Substance: DULOXETINE HYDROCHLORIDE
     Route: 065
  597. CYMBALTA [Suspect]
     Active Substance: DULOXETINE HYDROCHLORIDE
     Route: 065
  598. CYMBALTA [Suspect]
     Active Substance: DULOXETINE HYDROCHLORIDE
     Route: 065
  599. CYMBALTA [Suspect]
     Active Substance: DULOXETINE HYDROCHLORIDE
     Route: 065
  600. CYMBALTA [Suspect]
     Active Substance: DULOXETINE HYDROCHLORIDE
     Route: 065
  601. CYMBALTA [Suspect]
     Active Substance: DULOXETINE HYDROCHLORIDE
     Route: 065
  602. CYMBALTA [Suspect]
     Active Substance: DULOXETINE HYDROCHLORIDE
     Route: 065
  603. CYMBALTA [Suspect]
     Active Substance: DULOXETINE HYDROCHLORIDE
     Route: 065
  604. CYMBALTA [Suspect]
     Active Substance: DULOXETINE HYDROCHLORIDE
     Route: 065
  605. CYMBALTA [Suspect]
     Active Substance: DULOXETINE HYDROCHLORIDE
     Route: 065
  606. CYMBALTA [Suspect]
     Active Substance: DULOXETINE HYDROCHLORIDE
     Route: 065
  607. CYMBALTA [Suspect]
     Active Substance: DULOXETINE HYDROCHLORIDE
     Route: 065
  608. CYMBALTA [Suspect]
     Active Substance: DULOXETINE HYDROCHLORIDE
     Route: 065
  609. CYMBALTA [Suspect]
     Active Substance: DULOXETINE HYDROCHLORIDE
     Dosage: NOT SPECIFIED
     Route: 065
  610. CYMBALTA [Suspect]
     Active Substance: DULOXETINE HYDROCHLORIDE
     Route: 065
  611. CYMBALTA [Suspect]
     Active Substance: DULOXETINE HYDROCHLORIDE
     Route: 065
  612. LISINOPRIL [Suspect]
     Active Substance: LISINOPRIL
     Indication: Product used for unknown indication
     Route: 065
  613. LISINOPRIL [Suspect]
     Active Substance: LISINOPRIL
     Route: 065
  614. LISINOPRIL [Suspect]
     Active Substance: LISINOPRIL
     Route: 065
  615. LISINOPRIL [Suspect]
     Active Substance: LISINOPRIL
     Route: 065
  616. LISINOPRIL [Suspect]
     Active Substance: LISINOPRIL
     Route: 065
  617. LISINOPRIL [Suspect]
     Active Substance: LISINOPRIL
     Route: 065
  618. LISINOPRIL [Suspect]
     Active Substance: LISINOPRIL
     Route: 065
  619. AZITHROMYCIN ANHYDROUS [Suspect]
     Active Substance: AZITHROMYCIN ANHYDROUS
     Indication: Migraine
     Route: 065
  620. AZITHROMYCIN ANHYDROUS [Suspect]
     Active Substance: AZITHROMYCIN ANHYDROUS
     Route: 065
  621. AZITHROMYCIN ANHYDROUS [Suspect]
     Active Substance: AZITHROMYCIN ANHYDROUS
     Route: 065
  622. AZITHROMYCIN ANHYDROUS [Suspect]
     Active Substance: AZITHROMYCIN ANHYDROUS
     Route: 065
  623. AZITHROMYCIN ANHYDROUS [Suspect]
     Active Substance: AZITHROMYCIN ANHYDROUS
     Route: 065
  624. AZITHROMYCIN ANHYDROUS [Suspect]
     Active Substance: AZITHROMYCIN ANHYDROUS
     Route: 065
  625. AZITHROMYCIN ANHYDROUS [Suspect]
     Active Substance: AZITHROMYCIN ANHYDROUS
     Route: 065
  626. AZITHROMYCIN ANHYDROUS [Suspect]
     Active Substance: AZITHROMYCIN ANHYDROUS
     Route: 065
  627. DULOXETINE [Suspect]
     Active Substance: DULOXETINE
     Indication: Migraine
     Route: 065
  628. DULOXETINE [Suspect]
     Active Substance: DULOXETINE
     Indication: Product used for unknown indication
     Route: 065
  629. PREDNISONE [Suspect]
     Active Substance: PREDNISONE
     Indication: Product used for unknown indication
     Dosage: PREDNISONE
     Route: 065
  630. PREDNISONE [Suspect]
     Active Substance: PREDNISONE
     Route: 065
  631. PREDNISONE [Suspect]
     Active Substance: PREDNISONE
     Dosage: PREDNISONE
     Route: 065
  632. ACETAMINOPHEN\TRAMADOL HYDROCHLORIDE [Suspect]
     Active Substance: ACETAMINOPHEN\TRAMADOL HYDROCHLORIDE
     Indication: Product used for unknown indication
     Route: 065
  633. ACETAMINOPHEN\TRAMADOL HYDROCHLORIDE [Suspect]
     Active Substance: ACETAMINOPHEN\TRAMADOL HYDROCHLORIDE
     Route: 065
  634. ACETAMINOPHEN\METOCLOPRAMIDE HYDROCHLORIDE [Suspect]
     Active Substance: ACETAMINOPHEN\METOCLOPRAMIDE HYDROCHLORIDE
     Indication: Migraine
     Route: 065
  635. ACETAMINOPHEN\CODEINE PHOSPHATE [Suspect]
     Active Substance: ACETAMINOPHEN\CODEINE PHOSPHATE
     Indication: Product used for unknown indication
     Route: 065
  636. ACETAMINOPHEN\CODEINE PHOSPHATE [Suspect]
     Active Substance: ACETAMINOPHEN\CODEINE PHOSPHATE
     Route: 065
  637. ALBUTEROL [Suspect]
     Active Substance: ALBUTEROL
     Indication: Product used for unknown indication
     Route: 065
  638. ALBUTEROL [Suspect]
     Active Substance: ALBUTEROL
     Route: 065
  639. ALBUTEROL [Suspect]
     Active Substance: ALBUTEROL
     Route: 065
  640. ALBUTEROL [Suspect]
     Active Substance: ALBUTEROL
     Route: 065
  641. ALBUTEROL [Suspect]
     Active Substance: ALBUTEROL
     Route: 065
  642. ALBUTEROL [Suspect]
     Active Substance: ALBUTEROL
     Route: 065
  643. INDOMETHACIN [Suspect]
     Active Substance: INDOMETHACIN
     Indication: Migraine
     Route: 054
  644. INDOMETHACIN [Suspect]
     Active Substance: INDOMETHACIN
     Indication: Product used for unknown indication
     Dosage: 7 ADMINISTRATIONS
     Route: 054
  645. INDOMETHACIN [Suspect]
     Active Substance: INDOMETHACIN
     Route: 054
  646. INDOMETHACIN [Suspect]
     Active Substance: INDOMETHACIN
     Route: 054
  647. INDOMETHACIN [Suspect]
     Active Substance: INDOMETHACIN
     Route: 054
  648. INDOMETHACIN [Suspect]
     Active Substance: INDOMETHACIN
     Route: 054
  649. INDOMETHACIN [Suspect]
     Active Substance: INDOMETHACIN
     Route: 054
  650. INDOMETHACIN [Suspect]
     Active Substance: INDOMETHACIN
     Route: 054
  651. INDOMETHACIN [Suspect]
     Active Substance: INDOMETHACIN
     Route: 054
  652. INDOMETHACIN [Suspect]
     Active Substance: INDOMETHACIN
     Route: 054
  653. INDOMETHACIN [Suspect]
     Active Substance: INDOMETHACIN
     Route: 054
  654. INDOMETHACIN [Suspect]
     Active Substance: INDOMETHACIN
     Route: 054
  655. INDOMETHACIN [Suspect]
     Active Substance: INDOMETHACIN
     Route: 054
  656. INDOMETHACIN [Suspect]
     Active Substance: INDOMETHACIN
     Route: 054
  657. INDOMETHACIN [Suspect]
     Active Substance: INDOMETHACIN
     Route: 054
  658. INDOMETHACIN [Suspect]
     Active Substance: INDOMETHACIN
     Route: 054
  659. INDOMETHACIN [Suspect]
     Active Substance: INDOMETHACIN
     Route: 054
  660. INDOMETHACIN [Suspect]
     Active Substance: INDOMETHACIN
     Route: 054
  661. INDOMETHACIN [Suspect]
     Active Substance: INDOMETHACIN
     Route: 054
  662. INDOMETHACIN [Suspect]
     Active Substance: INDOMETHACIN
     Route: 054
  663. INDOMETHACIN [Suspect]
     Active Substance: INDOMETHACIN
     Route: 054
  664. INDOMETHACIN [Suspect]
     Active Substance: INDOMETHACIN
     Route: 054
  665. INDOMETHACIN [Suspect]
     Active Substance: INDOMETHACIN
     Route: 054
  666. INDOMETHACIN [Suspect]
     Active Substance: INDOMETHACIN
     Route: 054
  667. INDOMETHACIN [Suspect]
     Active Substance: INDOMETHACIN
     Route: 054
  668. INDOMETHACIN [Suspect]
     Active Substance: INDOMETHACIN
     Route: 054
  669. INDOMETHACIN [Suspect]
     Active Substance: INDOMETHACIN
     Route: 054
  670. INDOMETHACIN [Suspect]
     Active Substance: INDOMETHACIN
     Route: 054
  671. INDOMETHACIN [Suspect]
     Active Substance: INDOMETHACIN
     Route: 065
  672. INDOMETHACIN [Suspect]
     Active Substance: INDOMETHACIN
     Route: 054
  673. INDOMETHACIN [Suspect]
     Active Substance: INDOMETHACIN
     Route: 054
  674. INDOMETHACIN [Suspect]
     Active Substance: INDOMETHACIN
     Route: 054
  675. INDOMETHACIN [Suspect]
     Active Substance: INDOMETHACIN
     Route: 054
  676. INDOMETHACIN [Suspect]
     Active Substance: INDOMETHACIN
     Route: 054
  677. INDOMETHACIN [Suspect]
     Active Substance: INDOMETHACIN
     Route: 054
  678. INDOMETHACIN [Suspect]
     Active Substance: INDOMETHACIN
     Route: 054
  679. INDOMETHACIN [Suspect]
     Active Substance: INDOMETHACIN
     Route: 054
  680. INDOMETHACIN [Suspect]
     Active Substance: INDOMETHACIN
     Route: 054
  681. INDOMETHACIN [Suspect]
     Active Substance: INDOMETHACIN
     Route: 054
  682. INDOMETHACIN [Suspect]
     Active Substance: INDOMETHACIN
     Route: 054
  683. INDOMETHACIN [Suspect]
     Active Substance: INDOMETHACIN
     Route: 054
  684. INDOMETHACIN [Suspect]
     Active Substance: INDOMETHACIN
     Route: 054
  685. INDOMETHACIN [Suspect]
     Active Substance: INDOMETHACIN
     Route: 054
  686. INDOMETHACIN [Suspect]
     Active Substance: INDOMETHACIN
     Route: 054
  687. INDOMETHACIN [Suspect]
     Active Substance: INDOMETHACIN
     Route: 054
  688. INDOMETHACIN [Suspect]
     Active Substance: INDOMETHACIN
     Route: 054
  689. FLUCONAZOLE [Suspect]
     Active Substance: FLUCONAZOLE
     Indication: Product used for unknown indication
     Route: 065
  690. FLUOXETINE [Suspect]
     Active Substance: FLUOXETINE HYDROCHLORIDE
     Indication: Product used for unknown indication
     Route: 065
  691. FLUOXETINE [Suspect]
     Active Substance: FLUOXETINE HYDROCHLORIDE
     Route: 065
  692. FLUOXETINE [Suspect]
     Active Substance: FLUOXETINE HYDROCHLORIDE
     Route: 065
  693. FLUOXETINE [Suspect]
     Active Substance: FLUOXETINE HYDROCHLORIDE
     Dosage: FLUOXETINE HYDROCHLORIDE
     Route: 065
  694. ZESTRIL [Suspect]
     Active Substance: LISINOPRIL
     Indication: Product used for unknown indication
     Route: 048
  695. ZESTRIL [Suspect]
     Active Substance: LISINOPRIL
     Dosage: 2 ADMINISTRATIONS
     Route: 048
  696. ZESTRIL [Suspect]
     Active Substance: LISINOPRIL
     Route: 065
  697. ZESTRIL [Suspect]
     Active Substance: LISINOPRIL
     Route: 048
  698. SULFAMETHOXAZOLE\TRIMETHOPRIM [Suspect]
     Active Substance: SULFAMETHOXAZOLE\TRIMETHOPRIM
     Indication: Product used for unknown indication
     Route: 065
  699. TOPAMAX [Suspect]
     Active Substance: TOPIRAMATE
     Indication: Migraine
     Route: 065
  700. TOPAMAX [Suspect]
     Active Substance: TOPIRAMATE
     Route: 065
  701. CIPRO [Suspect]
     Active Substance: CIPROFLOXACIN HYDROCHLORIDE
     Indication: Migraine
     Route: 065
  702. CIPRO [Suspect]
     Active Substance: CIPROFLOXACIN HYDROCHLORIDE
     Route: 065
  703. CIPRO [Suspect]
     Active Substance: CIPROFLOXACIN HYDROCHLORIDE
     Dosage: NOT SPECIFIED
     Route: 065
  704. NEXIUM [Suspect]
     Active Substance: ESOMEPRAZOLE MAGNESIUM
     Indication: Migraine
     Route: 065
  705. ERENUMAB-AOOE [Suspect]
     Active Substance: ERENUMAB-AOOE
     Indication: Migraine
     Route: 065
  706. ASPIRIN\CAFFEINE\CODEINE [Suspect]
     Active Substance: ASPIRIN\CAFFEINE\CODEINE
     Indication: Migraine
     Route: 065
  707. VENLAFAXINE HYDROCHLORIDE [Suspect]
     Active Substance: VENLAFAXINE HYDROCHLORIDE
     Indication: Product used for unknown indication
     Route: 065
  708. VENLAFAXINE HYDROCHLORIDE [Suspect]
     Active Substance: VENLAFAXINE HYDROCHLORIDE
     Route: 065
  709. AZITHROMYCIN [Suspect]
     Active Substance: AZITHROMYCIN
     Indication: Product used for unknown indication
     Route: 065
  710. AZITHROMYCIN [Suspect]
     Active Substance: AZITHROMYCIN
     Route: 065
  711. AZITHROMYCIN [Suspect]
     Active Substance: AZITHROMYCIN
     Route: 065
  712. ESOMEPRAZOLE MAGNESIUM [Suspect]
     Active Substance: ESOMEPRAZOLE MAGNESIUM
     Indication: Product used for unknown indication
     Route: 065
  713. ESOMEPRAZOLE MAGNESIUM [Suspect]
     Active Substance: ESOMEPRAZOLE MAGNESIUM
     Route: 065
  714. LANSOPRAZOLE [Suspect]
     Active Substance: LANSOPRAZOLE
     Indication: Migraine
     Route: 065
  715. RABEPRAZOLE [Suspect]
     Active Substance: RABEPRAZOLE
     Indication: Migraine
     Route: 065
  716. RABEPRAZOLE [Suspect]
     Active Substance: RABEPRAZOLE
     Indication: Product used for unknown indication
     Dosage: 19 ADMINISTRATIONS
     Route: 065
  717. RABEPRAZOLE [Suspect]
     Active Substance: RABEPRAZOLE
     Dosage: 19 ADMINISTRATIONS
     Route: 065
  718. RABEPRAZOLE [Suspect]
     Active Substance: RABEPRAZOLE
     Dosage: 19 ADMINISTRATIONS
     Route: 065
  719. ZOPICLONE [Suspect]
     Active Substance: ZOPICLONE
     Indication: Migraine
     Route: 065
  720. PREDNISOLONE [Suspect]
     Active Substance: PREDNISOLONE
     Indication: Product used for unknown indication
     Route: 065
  721. MOMETASONE FUROATE [Suspect]
     Active Substance: MOMETASONE FUROATE
     Indication: Migraine
     Route: 065
  722. MOMETASONE FUROATE [Suspect]
     Active Substance: MOMETASONE FUROATE
     Route: 065
  723. MOMETASONE FUROATE [Suspect]
     Active Substance: MOMETASONE FUROATE
     Dosage: 3 ADMINISTRATIONS
     Route: 065

REACTIONS (11)
  - Dysphonia [Unknown]
  - Drug intolerance [Unknown]
  - Hypersensitivity [Unknown]
  - Swelling face [Unknown]
  - Swollen tongue [Unknown]
  - Headache [Unknown]
  - Angioedema [Unknown]
  - Drug ineffective [Recovered/Resolved]
  - Off label use [Unknown]
  - Product use in unapproved indication [Recovered/Resolved]
  - Drug ineffective for unapproved indication [Unknown]
